FAERS Safety Report 10699825 (Version 1)
Quarter: 2015Q1

REPORT INFORMATION
  Report Type: Spontaneous
  Country: US (occurrence: None)
  Receive Date: 20150108
  Receipt Date: 20150108
  Transmission Date: 20150721
  Serious: Yes (Hospitalization)
  Sender: FDA-Public Use
  Company Number: None

PATIENT
  Age: 63 Year
  Sex: Male
  Weight: 67.2 kg

DRUGS (1)
  1. CISPLATIN. [Suspect]
     Active Substance: CISPLATIN
     Dates: end: 20141222

REACTIONS (4)
  - Atelectasis [None]
  - Cough [None]
  - Neutrophil count decreased [None]
  - Oropharyngeal pain [None]

NARRATIVE: CASE EVENT DATE: 20141229
